FAERS Safety Report 8550957-2 (Version None)
Quarter: 2012Q3

REPORT INFORMATION
  Report Type: 
  Country: None (occurrence: None)
  Receive Date: 20120730
  Receipt Date: 20110804
  Transmission Date: 20120928
  Serious: No
  Sender: FDA-Public Use
  Company Number: US-ALLERGAN-1110555US

PATIENT
  Sex: Male

DRUGS (3)
  1. ZADITOR [Concomitant]
     Indication: EYE PRURITUS
     Dosage: UNK
     Route: 047
  2. LUMIGAN [Suspect]
     Indication: GLAUCOMA
     Dosage: 2 GTT, QPM
     Route: 047
     Dates: start: 20110728, end: 20110731
  3. ZADITOR [Concomitant]
     Indication: EYE INFLAMMATION

REACTIONS (3)
  - ANXIETY [None]
  - TOOTHACHE [None]
  - PAIN IN JAW [None]
